FAERS Safety Report 8577357-3 (Version None)
Quarter: 2012Q3

REPORT INFORMATION
  Report Type: 
  Country: None (occurrence: None)
  Receive Date: 20120807
  Receipt Date: 20120228
  Transmission Date: 20120928
  Serious: Yes (Other)
  Sender: FDA-Public Use
  Company Number: CHPA2012US015539

PATIENT
  Sex: Male

DRUGS (2)
  1. EX-LAX LAXATIVE UNKNOWN FORMULA [Suspect]
     Dosage: UNK, UNK
     Route: 048
     Dates: start: 20120227
  2. DRUG THERAPY NOS [Concomitant]

REACTIONS (4)
  - MALAISE [None]
  - VOMITING [None]
  - INAPPROPRIATE SCHEDULE OF DRUG ADMINISTRATION [None]
  - CONVULSION [None]
